FAERS Safety Report 5671950-3 (Version None)
Quarter: 2008Q1

REPORT INFORMATION
  Report Type: 
  Country: None (occurrence: None)
  Receive Date: 20080319
  Receipt Date: 20080305
  Transmission Date: 20080703
  Serious: Yes (Hospitalization, Other)
  Sender: FDA-Public Use
  Company Number: US-JNJFOC-20070705400

PATIENT
  Sex: Female
  Weight: 104.33 kg

DRUGS (14)
  1. TOPAMAX [Suspect]
     Indication: MIGRAINE PROPHYLAXIS
     Route: 048
  2. TOPAMAX [Suspect]
     Indication: BIPOLAR DISORDER
     Dosage: SAMPLES FROM PHYSICIAN
     Route: 048
  3. NEURONTIN [Concomitant]
     Indication: NEUROPATHY PERIPHERAL
     Route: 048
  4. SOMA [Concomitant]
     Indication: DRUG USE FOR UNKNOWN INDICATION
     Route: 048
  5. LIPITOR [Concomitant]
     Indication: HYPERLIPIDAEMIA
     Route: 048
  6. XANAX [Concomitant]
     Indication: PANIC DISORDER
     Route: 048
  7. ACCUPRIL [Concomitant]
     Indication: HYPERTENSION
     Route: 048
  8. MORPHINE [Concomitant]
     Indication: NEUROPATHY PERIPHERAL
     Route: 048
  9. ZOLOFT [Concomitant]
     Indication: BIPOLAR DISORDER
     Route: 048
  10. SYNTHROID [Concomitant]
     Indication: HYPOTHYROIDISM
     Route: 048
  11. KLOR-CON [Concomitant]
     Indication: BLOOD POTASSIUM DECREASED
  12. K+ [Concomitant]
     Indication: ELECTROLYTE SUBSTITUTION THERAPY
     Route: 048
  13. LASIX [Concomitant]
     Indication: FLUID RETENTION
     Route: 048
  14. DARVOCET [Concomitant]
     Indication: NEUROPATHY PERIPHERAL
     Route: 048

REACTIONS (20)
  - ADRENAL INSUFFICIENCY [None]
  - BIPOLAR DISORDER [None]
  - CONTUSION [None]
  - CONVULSION [None]
  - DIARRHOEA [None]
  - DISEASE RECURRENCE [None]
  - FALL [None]
  - HEADACHE [None]
  - JOINT EFFUSION [None]
  - JOINT INJURY [None]
  - JOINT SWELLING [None]
  - LOSS OF CONSCIOUSNESS [None]
  - NAUSEA [None]
  - OEDEMA PERIPHERAL [None]
  - SOMNOLENCE [None]
  - SPEECH DISORDER [None]
  - SUICIDAL IDEATION [None]
  - VOMITING [None]
  - WITHDRAWAL SYNDROME [None]
  - WOUND [None]
